FAERS Safety Report 5125812-0 (Version None)
Quarter: 2006Q4

REPORT INFORMATION
  Report Type: 
  Country: None (occurrence: None)
  Receive Date: 20061010
  Receipt Date: 20061010
  Transmission Date: 20070319
  Serious: Yes (Life-Threatening, Hospitalization)
  Sender: FDA-Public Use
  Company Number: None

PATIENT
  Sex: Female
  Weight: 57.7 kg

DRUGS (1)
  1. GABAPENTIN [Suspect]
     Indication: BACK PAIN
     Dosage: 100 MG TK 1-6 CS QHS PO
     Route: 048
     Dates: start: 20060911, end: 20060914

REACTIONS (5)
  - CHOKING [None]
  - CYANOSIS [None]
  - DRUG INEFFECTIVE [None]
  - DYSPNOEA [None]
  - PANIC REACTION [None]
